FAERS Safety Report 13526843 (Version 2)
Quarter: 2017Q2

REPORT INFORMATION
  Report Type: Report from Study
  Country: GB (occurrence: GB)
  Receive Date: 20170509
  Receipt Date: 20170612
  Transmission Date: 20170830
  Serious: Yes (Death)
  Sender: FDA-Public Use
  Company Number: GB-ALIMERA SCIENCES LIMITED-GB-IL-2017-003435

PATIENT

DRUGS (11)
  1. FELODIPINE. [Concomitant]
     Active Substance: FELODIPINE
     Indication: HYPERTENSION
     Dosage: UNK
  2. LINAGLIPTIN [Concomitant]
     Active Substance: LINAGLIPTIN
     Indication: DIABETES MELLITUS
     Dosage: UNK
     Dates: start: 20160503
  3. ILUVIEN [Suspect]
     Active Substance: FLUOCINOLONE ACETONIDE
     Indication: DIABETIC RETINAL OEDEMA
     Dosage: 0.25 MCG, LEFT EYE
     Route: 031
     Dates: start: 20150814
  4. DOXAZOSIN [Concomitant]
     Active Substance: DOXAZOSIN\DOXAZOSIN MESYLATE
     Indication: RENAL IMPAIRMENT
     Dosage: UNK
     Dates: start: 20160503
  5. PRO D3 1,000UNIT [Concomitant]
     Indication: MINERAL SUPPLEMENTATION
     Dosage: 1000 UT, UNK
     Dates: start: 20160503
  6. NOVO RAPID INSULIN [Concomitant]
     Indication: DIABETES MELLITUS
     Dosage: UNK
  7. ASPIRIN. [Concomitant]
     Active Substance: ASPIRIN
     Indication: PERIPHERAL VASCULAR DISORDER
     Dosage: UNK
  8. LANTUS [Concomitant]
     Active Substance: INSULIN GLARGINE
     Indication: DIABETES MELLITUS
     Dosage: UNK
  9. ATORVASTATIN [Concomitant]
     Active Substance: ATORVASTATIN
     Indication: HYPERCHOLESTEROLAEMIA
     Dosage: UNK
  10. LANSOPRAZOL [Concomitant]
     Active Substance: LANSOPRAZOLE
     Indication: GASTROOESOPHAGEAL REFLUX DISEASE
     Dosage: UNK
  11. GATTE GANFORT [Concomitant]
     Indication: INTRAOCULAR PRESSURE INCREASED
     Dosage: LEFT EYE
     Dates: start: 20160720

REACTIONS (1)
  - Vascular dementia [Fatal]

NARRATIVE: CASE EVENT DATE: 20170420
